FAERS Safety Report 9432927 (Version 3)
Quarter: 2013Q4

REPORT INFORMATION
  Report Type: Spontaneous
  Country: GB (occurrence: None)
  Receive Date: 20130729
  Receipt Date: 20131107
  Transmission Date: 20140711
  Serious: Yes (Other)
  Sender: FDA-Public Use
  Company Number: AUR-APL-2013-06038

PATIENT
  Age: 70 Year
  Sex: Male
  Weight: 80 kg

DRUGS (5)
  1. RAMIPRIL [Suspect]
     Indication: HYPERTENSION
     Dosage: 1.25 MG (1.25 MG, 1 IN 1 D), ORAL
     Route: 048
     Dates: start: 20120803, end: 20130628
  2. OMEPRAZOLE (OMEPRAZOLE) [Suspect]
     Indication: PRODUCT USED FOR UNKNOWN INDICATION
     Dosage: 40 MG (20 MG, 2 IN 1 D), ORAL
     Route: 048
     Dates: start: 20121214
  3. ASPIRIN (ACETYLSALICYLIC ACID) [Concomitant]
  4. BISOPROLOL (BISOPROLOL) [Concomitant]
  5. MONTELUKAST (MONTELUKAST) [Concomitant]

REACTIONS (4)
  - Erythema [None]
  - Skin exfoliation [None]
  - Swelling face [None]
  - Facial pain [None]
